FAERS Safety Report 19990901 (Version 1)
Quarter: 2021Q4

REPORT INFORMATION
  Report Type: Spontaneous
  Country: DE (occurrence: RU)
  Receive Date: 20211025
  Receipt Date: 20211025
  Transmission Date: 20220303
  Serious: Yes (Other)
  Sender: FDA-Public Use
  Company Number: RU-MERCK HEALTHCARE KGAA-9272850

PATIENT
  Age: 72 Year
  Sex: Male

DRUGS (8)
  1. ERBITUX [Suspect]
     Active Substance: CETUXIMAB
     Indication: Colorectal cancer metastatic
     Dosage: UNK UNK, UNKNOWN
     Route: 065
     Dates: start: 20200930, end: 20201211
  2. ERBITUX [Suspect]
     Active Substance: CETUXIMAB
     Dosage: UNK UNK, UNKNOWN (MAINTENANCE MODE)
     Route: 065
     Dates: start: 20210201, end: 20210513
  3. LEUCOVORIN [Concomitant]
     Active Substance: LEUCOVORIN
     Indication: Colorectal cancer metastatic
     Dosage: UNK
     Dates: start: 20200930, end: 20201211
  4. LEUCOVORIN [Concomitant]
     Active Substance: LEUCOVORIN
     Dosage: UNK (MAINTENANCE MODE)
     Dates: start: 20210201, end: 20210513
  5. FLUOROURACIL [Concomitant]
     Active Substance: FLUOROURACIL
     Indication: Colorectal cancer metastatic
     Dosage: UNK
     Dates: start: 20200930, end: 20201211
  6. FLUOROURACIL [Concomitant]
     Active Substance: FLUOROURACIL
     Dosage: UNK (MAINTENANCE MODE)
     Dates: start: 20210201, end: 20210513
  7. OXALIPLATIN [Concomitant]
     Active Substance: OXALIPLATIN
     Indication: Colorectal cancer metastatic
     Dosage: UNK
  8. OXALIPLATIN [Concomitant]
     Active Substance: OXALIPLATIN
     Dosage: UNK
     Dates: start: 20200930, end: 20201211

REACTIONS (4)
  - Hydronephrosis [Unknown]
  - Renal cyst [Unknown]
  - Diverticulum intestinal [Unknown]
  - Tissue infiltration [Unknown]

NARRATIVE: CASE EVENT DATE: 20210528
